FAERS Safety Report 11564487 (Version 1)
Quarter: 2015Q3

REPORT INFORMATION
  Report Type: Spontaneous
  Country: IT (occurrence: IT)
  Receive Date: 20150928
  Receipt Date: 20150928
  Transmission Date: 20151125
  Serious: Yes (Hospitalization)
  Sender: FDA-Public Use
  Company Number: IT-EXELIXIS-CABO-15005689

PATIENT
  Sex: Male

DRUGS (1)
  1. COMETRIQ [Suspect]
     Active Substance: CABOZANTINIB S-MALATE
     Indication: PRODUCT USED FOR UNKNOWN INDICATION

REACTIONS (3)
  - Dysphagia [Unknown]
  - Skin reaction [Unknown]
  - Aphthous ulcer [Unknown]

NARRATIVE: CASE EVENT DATE: 2015
